FAERS Safety Report 24114514 (Version 1)
Quarter: 2024Q3

REPORT INFORMATION
  Report Type: Spontaneous
  Country: HR (occurrence: HR)
  Receive Date: 20240720
  Receipt Date: 20240720
  Transmission Date: 20241016
  Serious: Yes (Other)
  Sender: SANDOZ
  Company Number: None

PATIENT
  Age: 68 Year
  Sex: Female

DRUGS (5)
  1. ALPRAZOLAM [Suspect]
     Active Substance: ALPRAZOLAM
     Indication: Product used for unknown indication
     Dosage: 20 TBL ALPRAZOLAMA A 0.5 MG
     Route: 048
     Dates: start: 20240620, end: 20240620
  2. ALPRAZOLAM [Suspect]
     Active Substance: ALPRAZOLAM
     Dosage: 14 TBL ALPRAZOLAMA A 1 MG
     Route: 048
     Dates: start: 20240620, end: 20240620
  3. FEVARIN [Suspect]
     Active Substance: FLUVOXAMINE MALEATE
     Indication: Product used for unknown indication
     Dosage: 29 TBL FLUVOXAMINA A 100 MG
     Route: 048
     Dates: start: 20240620, end: 20240620
  4. ZOLPIDEM [Suspect]
     Active Substance: ZOLPIDEM TARTRATE
     Indication: Product used for unknown indication
     Dosage: 30 TBL ZOLPIDEMA A 10 MG
     Route: 048
     Dates: start: 20240620, end: 20240620
  5. ZALDIAR [Suspect]
     Active Substance: ACETAMINOPHEN\TRAMADOL HYDROCHLORIDE
     Indication: Product used for unknown indication
     Dosage: 1 DF = 1 TABLETA = 37,5 MG TRAMADOLKLORID + 325 MG PARACETAMOL
     Route: 048
     Dates: start: 20240620, end: 20240620

REACTIONS (8)
  - Suicide attempt [Unknown]
  - Hypotension [Unknown]
  - Blood pressure fluctuation [Unknown]
  - Hypertension [Unknown]
  - Somnolence [Unknown]
  - Respiratory depression [Unknown]
  - Depressed level of consciousness [Unknown]
  - Intentional overdose [Unknown]

NARRATIVE: CASE EVENT DATE: 20240601
